FAERS Safety Report 19066571 (Version 1)
Quarter: 2021Q1

REPORT INFORMATION
  Report Type: Spontaneous
  Country: US (occurrence: US)
  Receive Date: 20210328
  Receipt Date: 20210328
  Transmission Date: 20210420
  Serious: Yes (Hospitalization)
  Sender: FDA-Public Use
  Company Number: US-TEVA-2021-US-1893783

PATIENT
  Age: 2 Year
  Sex: Male

DRUGS (3)
  1. CARBOPLATIN. [Suspect]
     Active Substance: CARBOPLATIN
     Indication: CHOROID PLEXUS CARCINOMA
     Dosage: MULTIPLE CYCLES
     Route: 065
  2. IFOSFAMIDE. [Suspect]
     Active Substance: IFOSFAMIDE
     Indication: CHOROID PLEXUS CARCINOMA
     Dosage: MULTIPLE CYCLES
     Route: 065
  3. ETOPOSIDE. [Suspect]
     Active Substance: ETOPOSIDE
     Indication: CHOROID PLEXUS CARCINOMA
     Dosage: MULTIPLE CYCLES
     Route: 065

REACTIONS (7)
  - Fanconi syndrome acquired [Recovering/Resolving]
  - Renal tubular acidosis [Recovering/Resolving]
  - Hypophosphataemic osteomalacia [Recovering/Resolving]
  - Behaviour disorder [Recovering/Resolving]
  - Motor developmental delay [Recovering/Resolving]
  - Tibia fracture [Recovering/Resolving]
  - Tetany [Recovered/Resolved]
